FAERS Safety Report 23059755 (Version 1)
Quarter: 2023Q4

REPORT INFORMATION
  Report Type: Spontaneous
  Country: SE (occurrence: SE)
  Receive Date: 20231012
  Receipt Date: 20231012
  Transmission Date: 20240109
  Serious: Yes (Other)
  Sender: FDA-Public Use
  Company Number: SE-PFIZER INC-PV202300166020

PATIENT
  Age: 26 Year
  Sex: Female

DRUGS (5)
  1. METHOTREXATE SODIUM [Suspect]
     Active Substance: METHOTREXATE SODIUM
     Indication: Overlap syndrome
     Dosage: UNK
  2. PREDNISOLONE [Suspect]
     Active Substance: PREDNISOLONE
     Indication: Overlap syndrome
     Dosage: UNK
  3. RITUXIMAB [Suspect]
     Active Substance: RITUXIMAB
     Indication: Overlap syndrome
     Dosage: UNK
  4. AZATHIOPRINE [Suspect]
     Active Substance: AZATHIOPRINE
     Indication: Overlap syndrome
     Dosage: UNK
  5. HYDROXYCHLOROQUINE [Suspect]
     Active Substance: HYDROXYCHLOROQUINE
     Indication: Overlap syndrome
     Dosage: UNK

REACTIONS (1)
  - Condition aggravated [Unknown]
